FAERS Safety Report 22389922 (Version 4)
Quarter: 2023Q4

REPORT INFORMATION
  Report Type: Report from Study
  Country: BE (occurrence: None)
  Receive Date: 20230531
  Receipt Date: 20231113
  Transmission Date: 20240109
  Serious: Yes (Hospitalization)
  Sender: FDA-Public Use
  Company Number: BE-ROCHE-3357354

PATIENT
  Age: 64 Year
  Sex: Female
  Weight: 102 kg

DRUGS (26)
  1. ATEZOLIZUMAB [Suspect]
     Active Substance: ATEZOLIZUMAB
     Indication: Small cell lung cancer extensive stage
     Dosage: START DATE OF MOST RECENT DOSE (1200 MG) OF STUDY DRUG PRIOR TO AE/SAE WAS ON 03/MAY/2023
     Route: 041
     Dates: start: 20230322
  2. CARBOPLATIN [Suspect]
     Active Substance: CARBOPLATIN
     Indication: Small cell lung cancer extensive stage
     Dosage: DOSE LAST STUDY DRUG ADMIN PRIOR AE/SAE WAS ON 400 MG, START DATE OF MOST RECENT DOSE OF STUDY DRUG
     Route: 042
     Dates: start: 20230322
  3. ETOPOSIDE [Suspect]
     Active Substance: ETOPOSIDE
     Indication: Small cell lung cancer extensive stage
     Dosage: START DATE OF MOST RECENT DOSE OF STUDY DRUG PRIOR TO AE/SAE WAS ON 05/MAY/2023,?FREQUENCY- OTHER
     Route: 042
     Dates: start: 20230322
  4. BISOPROLOL [Concomitant]
     Active Substance: BISOPROLOL\BISOPROLOL FUMARATE
     Indication: Hyperventilation
  5. ASPIRIN [Concomitant]
     Active Substance: ASPIRIN
  6. CALCIUM [Concomitant]
     Active Substance: CALCIUM
     Indication: Hypocalcaemia
     Dosage: END DATE 26/MAY/2023
     Dates: start: 20230524
  7. MAGNESIUM SULFATE [Concomitant]
     Active Substance: MAGNESIUM SULFATE\MAGNESIUM SULFATE HEPTAHYDRATE
     Indication: Magnesium deficiency
     Dosage: END DATE 26/MAY/2023
     Dates: start: 20230524
  8. ZYRTEC (BELGIUM) [Concomitant]
     Indication: Folliculitis
     Dates: start: 20230503
  9. MOMETASONE FUROATE [Concomitant]
     Active Substance: MOMETASONE FUROATE
     Indication: Folliculitis
     Dates: start: 20230421, end: 20230503
  10. ATORVASTATIN [Concomitant]
     Active Substance: ATORVASTATIN
     Indication: Hypercholesterolaemia
  11. BETAHISTINE [Concomitant]
     Active Substance: BETAHISTINE
     Indication: Meniere^s disease
     Dates: start: 201409
  12. FENOTEROL HYDROBROMIDE [Concomitant]
     Active Substance: FENOTEROL HYDROBROMIDE
     Indication: Chronic obstructive pulmonary disease
  13. BECLOMETHASONE DIPROPIONATE\FORMOTEROL FUMARATE [Concomitant]
     Active Substance: BECLOMETHASONE DIPROPIONATE\FORMOTEROL FUMARATE
     Indication: Chronic obstructive pulmonary disease
  14. OMEPRAZOLE [Concomitant]
     Active Substance: OMEPRAZOLE
  15. AMITRIPTYLINE HYDROCHLORIDE [Concomitant]
     Active Substance: AMITRIPTYLINE HYDROCHLORIDE
     Indication: Depression
  16. TRAMADOL [Concomitant]
     Active Substance: TRAMADOL\TRAMADOL HYDROCHLORIDE
     Dates: start: 2010, end: 20230521
  17. CALCIUM CARBONATE [Concomitant]
     Active Substance: CALCIUM CARBONATE
     Indication: Hypocalcaemia
     Dates: start: 20230524
  18. AKYNZEO [Concomitant]
     Indication: Premedication
     Dates: start: 20230322
  19. SOLU-MEDROL [Concomitant]
     Active Substance: METHYLPREDNISOLONE SODIUM SUCCINATE
     Indication: Premedication
     Route: 042
     Dates: start: 20230322
  20. D-VITAL [Concomitant]
     Dates: start: 20230324
  21. OXYCODONE HYDROCHLORIDE [Concomitant]
     Active Substance: OXYCODONE HYDROCHLORIDE
     Indication: Folliculitis
     Dates: start: 20230503
  22. OXYCONTIN [Concomitant]
     Active Substance: OXYCODONE HYDROCHLORIDE
     Indication: Folliculitis
     Dates: start: 20230503
  23. FLUCLOXACILLIN [Concomitant]
     Active Substance: FLUCLOXACILLIN
     Indication: Folliculitis
     Dates: start: 20230517, end: 20230517
  24. ULTRAVIST [Concomitant]
     Active Substance: IOPROMIDE
     Dates: start: 20230503, end: 20230503
  25. ALIZAPRIDE HYDROCHLORIDE [Concomitant]
     Active Substance: ALIZAPRIDE HYDROCHLORIDE
     Dates: start: 20230504, end: 20230505
  26. MAGNESIUM GLUCONATE [Concomitant]
     Active Substance: MAGNESIUM GLUCONATE
     Dates: start: 20230524

REACTIONS (1)
  - Myositis [Recovered/Resolved]

NARRATIVE: CASE EVENT DATE: 20230518
